FAERS Safety Report 21958293 (Version 1)
Quarter: 2023Q1

REPORT INFORMATION
  Report Type: Spontaneous
  Country: US (occurrence: US)
  Receive Date: 20230206
  Receipt Date: 20230206
  Transmission Date: 20230417
  Serious: No
  Sender: FDA-Public Use
  Company Number: US-PFIZER INC-PV202300020853

PATIENT
  Age: 22 Year
  Sex: Male

DRUGS (1)
  1. RIFABUTIN [Suspect]
     Active Substance: RIFABUTIN
     Dosage: UNK

REACTIONS (1)
  - Drug resistance [Unknown]
